FAERS Safety Report 20430430 (Version 1)
Quarter: 2022Q1

REPORT INFORMATION
  Report Type: Report from Study
  Country: FR (occurrence: FR)
  Receive Date: 20220204
  Receipt Date: 20220204
  Transmission Date: 20220424
  Serious: Yes (Life-Threatening, Hospitalization, Other)
  Sender: FDA-Public Use
  Company Number: FR-SERVIER-S20007287

PATIENT

DRUGS (8)
  1. PEGASPARGASE [Suspect]
     Active Substance: PEGASPARGASE
     Indication: Acute lymphocytic leukaemia
     Dosage: 2250 IU, QD, D12, D26
     Route: 042
     Dates: start: 20191101, end: 20191118
  2. METHYLPREDNISOLONE [Suspect]
     Active Substance: METHYLPREDNISOLONE
     Indication: Acute lymphocytic leukaemia
     Dosage: 56 MG, D8-D28
     Route: 048
     Dates: start: 20191028, end: 20191121
  3. TN UNSPECIFIED [Concomitant]
     Indication: Acute lymphocytic leukaemia
     Dosage: 1.3 MG, D8, D15 AND D22
     Route: 042
     Dates: start: 20191028, end: 20191115
  4. TN UNSPECIFIED [Concomitant]
     Indication: Acute lymphocytic leukaemia
     Dosage: 27 MG, D8, D15 AND D22
     Route: 042
     Dates: start: 20191028, end: 20191115
  5. TN UNSPECIFIED [Concomitant]
     Indication: Acute lymphocytic leukaemia
     Dosage: 12 MG, D9, D13, D18, D24
     Route: 037
     Dates: start: 20191021, end: 20191113
  6. TN UNSPECIFIED [Concomitant]
     Indication: Acute lymphocytic leukaemia
     Dosage: 30 MG, D9, D13, D18, D24
     Route: 037
     Dates: start: 20191021, end: 20191113
  7. TN UNSPECIFIED [Concomitant]
     Indication: Acute lymphocytic leukaemia
     Dosage: 15 MG, D9, D13, D18, D24
     Route: 037
     Dates: start: 20191021, end: 20191113
  8. VALPROATE SODIUM [Concomitant]
     Active Substance: VALPROATE SODIUM
     Indication: Epilepsy with myoclonic-atonic seizures
     Dosage: 250 MG, BID

REACTIONS (2)
  - Myositis [Recovered/Resolved with Sequelae]
  - Hypofibrinogenaemia [Recovered/Resolved]

NARRATIVE: CASE EVENT DATE: 20191104
